FAERS Safety Report 7761452-2 (Version None)
Quarter: 2011Q3

REPORT INFORMATION
  Report Type: 
  Country: None (occurrence: None)
  Receive Date: 20110919
  Receipt Date: 20110919
  Transmission Date: 20111222
  Serious: No
  Sender: FDA-Public Use
  Company Number: None

PATIENT
  Age: 60 Year
  Sex: Female

DRUGS (1)
  1. AZITHROMYCIN [Suspect]
     Dates: start: 20100218, end: 20100221

REACTIONS (6)
  - ENCEPHALOPATHY [None]
  - LIVER TRANSPLANT [None]
  - LIVER INJURY [None]
  - BLOOD ALBUMIN DECREASED [None]
  - SUBACUTE HEPATIC FAILURE [None]
  - COAGULOPATHY [None]
